FAERS Safety Report 5749247-2 (Version None)
Quarter: 2008Q2

REPORT INFORMATION
  Report Type: 
  Country: None (occurrence: None)
  Receive Date: 20080521
  Receipt Date: 20080521
  Transmission Date: 20081010
  Serious: Yes (Hospitalization, Other)
  Sender: FDA-Public Use
  Company Number: None

PATIENT
  Age: 29 Year
  Sex: Male
  Weight: 76.6579 kg

DRUGS (2)
  1. ATRIPLA [Suspect]
     Indication: ACQUIRED IMMUNODEFICIENCY SYNDROME
     Dates: start: 20080421, end: 20080530
  2. ATRIPLA [Suspect]
     Indication: HEPATITIS B
     Dates: start: 20080421, end: 20080530

REACTIONS (4)
  - ABNORMAL DREAMS [None]
  - ACUTE PSYCHOSIS [None]
  - DELIRIUM [None]
  - HALLUCINATIONS, MIXED [None]
